FAERS Safety Report 4979526-8 (Version None)
Quarter: 2006Q2

REPORT INFORMATION
  Report Type: 
  Country: None (occurrence: None)
  Receive Date: 20060418
  Receipt Date: 20060403
  Transmission Date: 20061013
  Serious: Yes (Other)
  Sender: FDA-Public Use
  Company Number: SE200604000169

PATIENT
  Age: 1 Day

DRUGS (1)
  1. FONTEX(FLUOXETINE HYDROCHLORIDE) [Suspect]
     Dosage: TRANSPLACENTAL
     Route: 064

REACTIONS (2)
  - ANOMALOUS PULMONARY VENOUS CONNECTION [None]
  - DRUG EXPOSURE DURING PREGNANCY [None]
